FAERS Safety Report 10651525 (Version 2)
Quarter: 2014Q4

REPORT INFORMATION
  Report Type: Report from Study
  Country: FR (occurrence: FR)
  Receive Date: 20141215
  Receipt Date: 20141223
  Transmission Date: 20150529
  Serious: Yes (Death, Life-Threatening, Hospitalization, Other)
  Sender: FDA-Public Use
  Company Number: FR-VERTEX PHARMACEUTICALS-2014-004854

PATIENT
  Age: 66 Year
  Sex: Male
  Weight: 86 kg

DRUGS (8)
  1. TELAPREVIR [Suspect]
     Active Substance: TELAPREVIR
     Indication: HEPATITIS C
     Dosage: 1125 MG, BID
     Route: 048
     Dates: start: 20140327, end: 20140610
  2. CRESTOR [Concomitant]
     Active Substance: ROSUVASTATIN CALCIUM
     Indication: DYSLIPIDAEMIA
     Dosage: 5 MG, QD
     Route: 065
     Dates: start: 20110324
  3. KARDEGIC [Suspect]
     Active Substance: ASPIRIN LYSINE
     Indication: MYOCARDIAL ISCHAEMIA
     Dosage: DOSAGE FORM: UNSPECIFIED
     Route: 065
     Dates: start: 20110309
  4. SECTRAL [Concomitant]
     Active Substance: ACEBUTOLOL HYDROCHLORIDE
     Indication: MYOCARDIAL ISCHAEMIA
     Dosage: 100 MG, BID
     Route: 065
     Dates: start: 20140309
  5. AMLOR [Concomitant]
     Active Substance: AMLODIPINE BESYLATE
     Indication: MYOCARDIAL ISCHAEMIA
     Dosage: 10 MG, QD
     Route: 065
     Dates: start: 20110324
  6. SOFOSBUVIR [Suspect]
     Active Substance: SOFOSBUVIR
     Indication: HEPATITIS C
     Dosage: DOSAGE FORM: UNSPECIFIED
     Route: 065
     Dates: start: 20140327, end: 20140610
  7. INEXIUM [Concomitant]
     Active Substance: ESOMEPRAZOLE
     Indication: GASTROOESOPHAGEAL REFLUX DISEASE
     Dosage: 20 MG, QD
     Route: 065
     Dates: start: 20130326
  8. DISCOTRINE [Concomitant]
     Active Substance: NITROGLYCERIN
     Indication: MYOCARDIAL ISCHAEMIA
     Dosage: UNK UNK, QD
     Route: 065
     Dates: start: 20140311

REACTIONS (23)
  - Shock haemorrhagic [Unknown]
  - Staphylococcal sepsis [Unknown]
  - Pneumonia [Unknown]
  - Diarrhoea [Unknown]
  - Liver transplant [Fatal]
  - Prostatitis Escherichia coli [Unknown]
  - Cerebral haemorrhage [Unknown]
  - Escherichia sepsis [Unknown]
  - Abdominal sepsis [Unknown]
  - Encephalopathy [Unknown]
  - Seizure [Unknown]
  - Altered state of consciousness [Unknown]
  - Melaena [Unknown]
  - Pleural effusion [Unknown]
  - Septic shock [Unknown]
  - Pulmonary embolism [Unknown]
  - Ascites [Unknown]
  - Cerebral haematoma [Unknown]
  - Nervous system disorder [Unknown]
  - Haematemesis [Unknown]
  - Rectal haemorrhage [Unknown]
  - Haemorrhage [Unknown]
  - Lymphangitis [Unknown]

NARRATIVE: CASE EVENT DATE: 20140610
